FAERS Safety Report 8763875 (Version 2)
Quarter: 2012Q4

REPORT INFORMATION
  Report Type: 
  Country: US (occurrence: None)
  Receive Date: 20120827
  Receipt Date: 20120925
  Transmission Date: 20130627
  Serious: Yes (Other)
  Sender: FDA-Public Use
  Company Number: DSU-2012-06589

PATIENT
  Age: 6 Decade
  Sex: Male

DRUGS (1)
  1. BENICAR [Suspect]
     Indication: BLOOD PRESSURE HIGH
     Route: 048
     Dates: start: 1990

REACTIONS (1)
  - Coronary arterial stent insertion [None]
